FAERS Safety Report 10837222 (Version 1)
Quarter: 2015Q1

REPORT INFORMATION
  Report Type: Report from Study
  Country: US (occurrence: US)
  Receive Date: 20150219
  Receipt Date: 20150219
  Transmission Date: 20150721
  Serious: Yes (Other)
  Sender: FDA-Public Use
  Company Number: US-ABBVIE-14P-163-1216386-00

PATIENT
  Age: 44 Year
  Sex: Female
  Weight: 77.18 kg

DRUGS (1)
  1. HUMIRA [Suspect]
     Active Substance: ADALIMUMAB
     Indication: CROHN^S DISEASE
     Route: 058
     Dates: start: 201309, end: 201311

REACTIONS (7)
  - Chest wall abscess [Unknown]
  - Abdominal neoplasm [Not Recovered/Not Resolved]
  - Conjunctivitis [Recovered/Resolved]
  - Rash [Recovering/Resolving]
  - Ocular hyperaemia [Recovered/Resolved]
  - Abdominal distension [Not Recovered/Not Resolved]
  - Abdominal pain [Not Recovered/Not Resolved]

NARRATIVE: CASE EVENT DATE: 201311
